FAERS Safety Report 6900743-1 (Version None)
Quarter: 2010Q3

REPORT INFORMATION
  Report Type: 
  Country: None (occurrence: None)
  Receive Date: 20100803
  Receipt Date: 20100730
  Transmission Date: 20110219
  Serious: Yes (Hospitalization)
  Sender: FDA-Public Use
  Company Number: PL-BRISTOL-MYERS SQUIBB COMPANY-15163892

PATIENT
  Age: 60 Year
  Sex: Male
  Weight: 50 kg

DRUGS (11)
  1. CISPLATIN [Suspect]
     Indication: NON-SMALL CELL LUNG CANCER
     Dosage: INTERRUPTED ON 07-JUN-2010
     Route: 042
     Dates: start: 20100531
  2. GEMCITABINE [Suspect]
     Indication: NON-SMALL CELL LUNG CANCER
     Dosage: LAST DOSE RECEIVED:31-MAY-2010.(INTERRUPTED ON 07-JUN-2010)
     Route: 042
     Dates: start: 20100531
  3. CYCLONAMINA [Concomitant]
     Route: 048
  4. EXACYL [Concomitant]
     Route: 048
  5. THIOCODIN [Concomitant]
     Dosage: 1DF=1 TABLETS.
  6. ELECTROLYTE SOLUTION [Concomitant]
     Dosage: COMPOUND
     Route: 042
  7. KETONAL [Concomitant]
     Route: 048
  8. TRAMAL [Concomitant]
     Route: 048
  9. HELICID [Concomitant]
     Route: 048
  10. THEOSPIREX [Concomitant]
     Route: 048
  11. ATROVENT [Concomitant]

REACTIONS (2)
  - HAEMOPTYSIS [None]
  - PYREXIA [None]
